FAERS Safety Report 7179855-6 (Version None)
Quarter: 2010Q4

REPORT INFORMATION
  Report Type: 
  Country: None (occurrence: None)
  Receive Date: 20101209
  Receipt Date: 20101130
  Transmission Date: 20110411
  Serious: Yes (Hospitalization)
  Sender: FDA-Public Use
  Company Number: 2010JP007081

PATIENT
  Age: 17 Year
  Sex: Male

DRUGS (1)
  1. TACROLIMUS [Suspect]
     Indication: RENAL TRANSPLANT

REACTIONS (1)
  - HAEMOLYTIC ANAEMIA [None]
